FAERS Safety Report 18202879 (Version 1)
Quarter: 2020Q3

REPORT INFORMATION
  Report Type: Spontaneous
  Country: RU (occurrence: RU)
  Receive Date: 20200827
  Receipt Date: 20200827
  Transmission Date: 20201103
  Serious: Yes (Other)
  Sender: FDA-Public Use
  Company Number: RU-ASTRAZENECA-2020SF03191

PATIENT
  Age: 849 Month
  Sex: Male
  Weight: 150 kg

DRUGS (3)
  1. TORASIMIDE [Concomitant]
     Route: 048
  2. VEROSHPIRON [Concomitant]
     Route: 048
  3. FORXIGA [Suspect]
     Active Substance: DAPAGLIFLOZIN
     Indication: TYPE 2 DIABETES MELLITUS
     Dosage: 10.0MG UNKNOWN
     Route: 048
     Dates: start: 202001, end: 20200710

REACTIONS (5)
  - Pyelonephritis chronic [Recovered/Resolved]
  - Prostatomegaly [Unknown]
  - Benign prostatic hyperplasia [Unknown]
  - Tubulointerstitial nephritis [Unknown]
  - Chronic kidney disease [Unknown]

NARRATIVE: CASE EVENT DATE: 202006
